FAERS Safety Report 4846207-0 (Version None)
Quarter: 2005Q4

REPORT INFORMATION
  Report Type: 
  Country: None (occurrence: None)
  Receive Date: 20051202
  Receipt Date: 20051202
  Transmission Date: 20060501
  Serious: Yes (Hospitalization)
  Sender: FDA-Public Use
  Company Number: None

PATIENT
  Sex: Female
  Weight: 86.8 kg

DRUGS (4)
  1. VINORELBINE TARTRATE [Suspect]
     Indication: CERVIX CARCINOMA
     Dosage: SEE IMAGE
     Route: 042
     Dates: start: 20051115
  2. CISPLATIN [Suspect]
     Dosage: SEE IMAGE
     Route: 042
     Dates: start: 20051115, end: 20051115
  3. COMPAZINE [Concomitant]
  4. DECADRON [Concomitant]

REACTIONS (4)
  - INFUSION SITE PAIN [None]
  - INSOMNIA [None]
  - MOVEMENT DISORDER [None]
  - PAIN IN EXTREMITY [None]
